FAERS Safety Report 14913685 (Version 26)
Quarter: 2021Q4

REPORT INFORMATION
  Report Type: Spontaneous
  Country: CA (occurrence: CA)
  Receive Date: 20180518
  Receipt Date: 20211210
  Transmission Date: 20220303
  Serious: Yes (Other)
  Sender: FDA-Public Use
  Company Number: CA-CELLTRION INC.-2018CA017544

PATIENT

DRUGS (41)
  1. INFLECTRA [Suspect]
     Active Substance: INFLIXIMAB-DYYB
     Indication: Colitis ulcerative
     Dosage: 400 MG, AT 0, 2, 6, THEN EVERY 8 WEEKS
     Route: 042
     Dates: start: 20171219, end: 20181219
  2. INFLECTRA [Suspect]
     Active Substance: INFLIXIMAB-DYYB
     Dosage: 400 MG, AT 0, 2, 6, THEN EVERY 8 WEEKS
     Route: 042
     Dates: start: 20180209, end: 20180209
  3. INFLECTRA [Suspect]
     Active Substance: INFLIXIMAB-DYYB
     Dosage: 430 MG, EVERY 4 WEEKS
     Route: 042
     Dates: start: 20180228, end: 20180724
  4. INFLECTRA [Suspect]
     Active Substance: INFLIXIMAB-DYYB
     Dosage: 430 MG, EVERY 4 WEEKS
     Route: 042
     Dates: start: 20180228, end: 20180724
  5. INFLECTRA [Suspect]
     Active Substance: INFLIXIMAB-DYYB
     Dosage: 430 MG, EVERY 4 WEEKS
     Route: 042
     Dates: start: 20180329
  6. INFLECTRA [Suspect]
     Active Substance: INFLIXIMAB-DYYB
     Dosage: 430 MG, EVERY 4 WEEKS
     Route: 042
     Dates: start: 20180424
  7. INFLECTRA [Suspect]
     Active Substance: INFLIXIMAB-DYYB
     Dosage: 430 MG, EVERY 4 WEEKS
     Route: 042
     Dates: start: 20180528
  8. INFLECTRA [Suspect]
     Active Substance: INFLIXIMAB-DYYB
     Dosage: 400 MG, EVERY 4 WEEKS
     Route: 042
     Dates: start: 20181022
  9. INFLECTRA [Suspect]
     Active Substance: INFLIXIMAB-DYYB
     Dosage: 400 MG, EVERY 4 WEEKS
     Route: 042
     Dates: start: 20181119
  10. INFLECTRA [Suspect]
     Active Substance: INFLIXIMAB-DYYB
     Dosage: 400 MG, EVERY 4 WEEKS
     Route: 042
     Dates: start: 20190311
  11. INFLECTRA [Suspect]
     Active Substance: INFLIXIMAB-DYYB
     Dosage: 400 MG, EVERY 4 WEEKS
     Route: 042
     Dates: start: 20190506
  12. INFLECTRA [Suspect]
     Active Substance: INFLIXIMAB-DYYB
     Dosage: 400 MG, EVERY 4 WEEKS
     Route: 042
     Dates: start: 20190604
  13. INFLECTRA [Suspect]
     Active Substance: INFLIXIMAB-DYYB
     Dosage: 400 MG, EVERY 4 WEEKS
     Route: 042
     Dates: start: 20190703
  14. INFLECTRA [Suspect]
     Active Substance: INFLIXIMAB-DYYB
     Dosage: 400 MG, EVERY 4 WEEKS
     Route: 042
     Dates: start: 20191021
  15. INFLECTRA [Suspect]
     Active Substance: INFLIXIMAB-DYYB
     Dosage: 400 MG, (EVERY 4 WEEKS)
     Route: 042
     Dates: start: 20191022
  16. INFLECTRA [Suspect]
     Active Substance: INFLIXIMAB-DYYB
     Dosage: 400 MG, EVERY 4 WEEKS
     Route: 042
     Dates: start: 20191118
  17. INFLECTRA [Suspect]
     Active Substance: INFLIXIMAB-DYYB
     Dosage: 400 MG, EVERY 4 WEEKS
     Route: 042
     Dates: start: 20200109
  18. INFLECTRA [Suspect]
     Active Substance: INFLIXIMAB-DYYB
     Dosage: 400 MG, EVERY 4 WEEKS
     Route: 042
     Dates: start: 20200109
  19. INFLECTRA [Suspect]
     Active Substance: INFLIXIMAB-DYYB
     Dosage: 400 MG, EVERY 4 WEEKS
     Route: 042
     Dates: start: 20200208
  20. INFLECTRA [Suspect]
     Active Substance: INFLIXIMAB-DYYB
     Dosage: 400 MG, EVERY 4 WEEKS
     Route: 042
     Dates: start: 20200409
  21. INFLECTRA [Suspect]
     Active Substance: INFLIXIMAB-DYYB
     Dosage: 400 MG, EVERY 4 WEEKS
     Route: 042
     Dates: start: 20200605
  22. INFLECTRA [Suspect]
     Active Substance: INFLIXIMAB-DYYB
     Dosage: 400 MG, EVERY 4 WEEKS
     Route: 042
     Dates: start: 20200703
  23. INFLECTRA [Suspect]
     Active Substance: INFLIXIMAB-DYYB
     Dosage: 400 MG, EVERY 4 WEEKS
     Route: 042
     Dates: start: 20200728
  24. INFLECTRA [Suspect]
     Active Substance: INFLIXIMAB-DYYB
     Dosage: 400 MG, EVERY 4 WEEKS
     Route: 042
     Dates: start: 20200827
  25. INFLECTRA [Suspect]
     Active Substance: INFLIXIMAB-DYYB
     Dosage: 400 MG, EVERY 4 WEEKS
     Route: 042
     Dates: start: 20201019
  26. INFLECTRA [Suspect]
     Active Substance: INFLIXIMAB-DYYB
     Dosage: 400 MG, EVERY 4 WEEKS
     Route: 042
     Dates: start: 20201116
  27. INFLECTRA [Suspect]
     Active Substance: INFLIXIMAB-DYYB
     Dosage: 400 MG, EVERY 4 WEEKS
     Route: 042
     Dates: start: 20201216
  28. INFLECTRA [Suspect]
     Active Substance: INFLIXIMAB-DYYB
     Dosage: 400 MG, EVERY 4 WEEKS
     Route: 042
     Dates: start: 20210604
  29. INFLECTRA [Suspect]
     Active Substance: INFLIXIMAB-DYYB
     Dosage: 400 MG, EVERY 4 WEEKS
     Route: 042
     Dates: start: 20210707
  30. INFLECTRA [Suspect]
     Active Substance: INFLIXIMAB-DYYB
     Dosage: 400 MG, EVERY 4 WEEKS
     Route: 042
     Dates: start: 20211027
  31. INFLECTRA [Suspect]
     Active Substance: INFLIXIMAB-DYYB
     Dosage: 400 MG, EVERY 4 WEEKS
     Route: 042
     Dates: start: 20211130
  32. AZATHIOPRINE [Concomitant]
     Active Substance: AZATHIOPRINE
     Dosage: 50 MG, 1X/DAY
     Route: 048
     Dates: end: 2019
  33. AZATHIOPRINE [Concomitant]
     Active Substance: AZATHIOPRINE
     Dosage: 3 DF, DAILY
     Dates: start: 2019, end: 2019
  34. AZATHIOPRINE [Concomitant]
     Active Substance: AZATHIOPRINE
     Dosage: 2 DF, DAILY
     Route: 048
     Dates: start: 2019
  35. FENTANYL [Concomitant]
     Active Substance: FENTANYL
     Indication: Sedative therapy
     Dosage: 50 UG
     Route: 042
     Dates: start: 20180326, end: 20180326
  36. HYDROCORTISONE [Concomitant]
     Active Substance: HYDROCORTISONE
     Indication: Premedication
     Dosage: 100 MG
     Dates: start: 20200703, end: 20200703
  37. HYDROCORTISONE [Concomitant]
     Active Substance: HYDROCORTISONE
     Dosage: 100 MG
     Route: 042
     Dates: start: 20200728, end: 20200728
  38. HYDROCORTISONE [Concomitant]
     Active Substance: HYDROCORTISONE
     Dosage: 100 MG
     Dates: start: 20200827, end: 20200827
  39. HYDROCORTISONE [Concomitant]
     Active Substance: HYDROCORTISONE
     Dosage: 100 MG
     Dates: start: 20210604, end: 20210604
  40. HYDROCORTISONE [Concomitant]
     Active Substance: HYDROCORTISONE
     Dosage: 100 MG
     Dates: start: 20210707, end: 20210707
  41. VANCOMYCIN [Concomitant]
     Active Substance: VANCOMYCIN
     Indication: Clostridium difficile infection
     Dosage: 4 DF, DAILY
     Route: 048
     Dates: start: 201710

REACTIONS (23)
  - Clostridium difficile infection [Unknown]
  - Large intestinal ulcer [Unknown]
  - Faecal calprotectin increased [Unknown]
  - Diverticulitis [Unknown]
  - Drug level below therapeutic [Recovered/Resolved]
  - Drug level above therapeutic [Unknown]
  - Off label use [Unknown]
  - Intentional product use issue [Unknown]
  - Off label use [Unknown]
  - Product administration error [Unknown]
  - Product dose omission issue [Unknown]
  - Condition aggravated [Recovered/Resolved]
  - Pseudopolyposis [Unknown]
  - Haemorrhoids [Unknown]
  - Hypotension [Unknown]
  - Body temperature decreased [Recovered/Resolved]
  - Cough [Unknown]
  - Oropharyngeal pain [Unknown]
  - Sneezing [Unknown]
  - Nasal congestion [Unknown]
  - Nasopharyngitis [Unknown]
  - Heart rate decreased [Not Recovered/Not Resolved]
  - Tooth disorder [Unknown]

NARRATIVE: CASE EVENT DATE: 20180101
